FAERS Safety Report 23286923 (Version 2)
Quarter: 2024Q1

REPORT INFORMATION
  Report Type: Spontaneous
  Country: US (occurrence: US)
  Receive Date: 20231212
  Receipt Date: 20240311
  Transmission Date: 20240410
  Serious: Yes (Death, Hospitalization)
  Sender: FDA-Public Use
  Company Number: US-TEVA-VS-3135051

PATIENT
  Age: 59 Year
  Sex: Male

DRUGS (4)
  1. CAPECITABINE [Suspect]
     Active Substance: CAPECITABINE
     Indication: Oesophageal adenocarcinoma recurrent
     Dosage: PALLIATIVE CHEMOTHERAPY WITH CAPECITABINE
     Route: 065
  2. PEMBROLIZUMAB [Suspect]
     Active Substance: PEMBROLIZUMAB
     Indication: Oesophageal adenocarcinoma recurrent
     Route: 065
  3. RAMUCIRUMAB [Suspect]
     Active Substance: RAMUCIRUMAB
     Indication: Oesophageal adenocarcinoma recurrent
     Dosage: CYCLICAL RAMUCIRUMAB THERAPY, PALLIATIVE CHEMOTHERAPY WITH CAPECITABINE
     Route: 065
  4. PACLITAXEL [Concomitant]
     Active Substance: PACLITAXEL
     Indication: Oesophageal adenocarcinoma recurrent
     Route: 065

REACTIONS (4)
  - Gastrointestinal anastomotic leak [Fatal]
  - Drug ineffective [Unknown]
  - Pneumonia aspiration [Fatal]
  - Respiratory failure [Fatal]
